FAERS Safety Report 7462394-2 (Version None)
Quarter: 2011Q2

REPORT INFORMATION
  Report Type: 
  Country: None (occurrence: None)
  Receive Date: 20110506
  Receipt Date: 20110428
  Transmission Date: 20111010
  Serious: Yes (Other)
  Sender: FDA-Public Use
  Company Number: DZ-NOVOPROD-327511

PATIENT
  Age: 50 Year
  Sex: Male

DRUGS (3)
  1. INSULIN [Suspect]
     Indication: DIABETES MELLITUS
  2. LEVEMIR [Suspect]
     Indication: DIABETES MELLITUS
     Dosage: 10 IU, QD
  3. INSULIN [Suspect]
     Indication: DIABETES MELLITUS
     Dosage: 8 IU, QD

REACTIONS (1)
  - HEPATIC FAILURE [None]
